FAERS Safety Report 9908076 (Version 1)
Quarter: 2014Q1

REPORT INFORMATION
  Report Type: Spontaneous
  Country: AU (occurrence: AU)
  Receive Date: 20140219
  Receipt Date: 20140219
  Transmission Date: 20141002
  Serious: Yes (Other)
  Sender: FDA-Public Use
  Company Number: AU-AMGEN-AUSSP2014010658

PATIENT
  Sex: 0

DRUGS (1)
  1. PANITUMUMAB [Suspect]
     Indication: SQUAMOUS CELL CARCINOMA OF SKIN
     Dosage: 6 MG/KG, EVERY 14 DAYS
     Route: 065

REACTIONS (1)
  - Skin toxicity [Unknown]
